FAERS Safety Report 6073328-X (Version None)
Quarter: 2009Q1

REPORT INFORMATION
  Report Type: 
  Country: None (occurrence: None)
  Receive Date: 20090211
  Receipt Date: 20090203
  Transmission Date: 20090719
  Serious: Yes (Other)
  Sender: FDA-Public Use
  Company Number: PHHY2009ZA03756

PATIENT
  Age: 14 Year
  Sex: Female

DRUGS (1)
  1. RITALIN LA [Suspect]
     Dosage: 20 MG, UNK

REACTIONS (2)
  - DEPRESSION [None]
  - SOCIAL AVOIDANT BEHAVIOUR [None]
